FAERS Safety Report 9647525 (Version 3)
Quarter: 2014Q1

REPORT INFORMATION
  Report Type: Spontaneous
  Country: US (occurrence: US)
  Receive Date: 20131028
  Receipt Date: 20140116
  Transmission Date: 20141002
  Serious: Yes (Hospitalization)
  Sender: FDA-Public Use
  Company Number: US-BIOGENIDEC-2013BI102550

PATIENT
  Age: 50 Year
  Sex: Female

DRUGS (12)
  1. TECFIDERA [Suspect]
     Indication: PRODUCT USED FOR UNKNOWN INDICATION
     Route: 048
     Dates: start: 20130908, end: 20130915
  2. TECFIDERA [Suspect]
     Indication: PRODUCT USED FOR UNKNOWN INDICATION
     Route: 048
     Dates: start: 20130916, end: 2013
  3. TECFIDERA [Suspect]
     Indication: PRODUCT USED FOR UNKNOWN INDICATION
     Dates: start: 201310
  4. AMLODIPINE BESYLATE [Concomitant]
     Route: 048
     Dates: start: 20130808
  5. CARISOPRODOL [Concomitant]
     Route: 048
     Dates: start: 20130808
  6. HYDROMORPHONE [Concomitant]
     Route: 048
     Dates: start: 20110214
  7. OMEPRAZOLE [Concomitant]
     Route: 048
     Dates: start: 20110214
  8. RELPAX [Concomitant]
     Indication: HEADACHE
     Route: 048
     Dates: start: 20120308
  9. SUMAVEL DOSEPRO [Concomitant]
     Dates: start: 20120308
  10. TRAZODONE [Concomitant]
     Route: 048
     Dates: start: 20091207
  11. VITAMIN D3 [Concomitant]
     Route: 048
     Dates: start: 20130808
  12. ROPINIROLE [Concomitant]
     Route: 048
     Dates: start: 20130507

REACTIONS (4)
  - Device related infection [Recovered/Resolved]
  - Prescribed underdose [Unknown]
  - Liver function test abnormal [Unknown]
  - Multiple sclerosis relapse [Unknown]
